FAERS Safety Report 9542445 (Version 1)
Quarter: 2013Q2

REPORT INFORMATION
  Report Type: Spontaneous
  Country: US (occurrence: None)
  Receive Date: 20130524
  Receipt Date: 20130524
  Transmission Date: 20140414
  Serious: Yes (Other)
  Sender: FDA-Public Use
  Company Number: PHEH2012US025532

PATIENT
  Age: 51 Year
  Sex: Female
  Weight: 63.5 kg

DRUGS (5)
  1. GILENYA [Suspect]
     Indication: MULTIPLE SCLEROSIS
     Route: 048
     Dates: start: 20110713
  2. BIOTIN(BIOTIN) [Concomitant]
  3. HYDROCHLORTHIAZIDE(HYDROCHLOROTHIAZIDE) [Concomitant]
  4. VIT D (ERGOCALCIFEROL) [Concomitant]
  5. MULTIVITAMIN(ASCORBIC ACID, CALCIUM PANTOTHENATE, ERGOCALCIFEROL, NICOTINAMIDE, PYRIDOZINE HYDROCHLORIDE, RETINOL, RIBOFLAVIN, THIAMINE HYDROCHLORIDE) [Concomitant]

REACTIONS (3)
  - Fatigue [None]
  - Headache [None]
  - Liver function test abnormal [None]
